FAERS Safety Report 8619650-1 (Version None)
Quarter: 2012Q3

REPORT INFORMATION
  Report Type: 
  Country: None (occurrence: None)
  Receive Date: 20120824
  Receipt Date: 20110627
  Transmission Date: 20120928
  Serious: No
  Sender: FDA-Public Use
  Company Number: US-GLAXOSMITHKLINE-A0933249A

PATIENT
  Sex: Male

DRUGS (1)
  1. BEXXAR [Suspect]
     Indication: LYMPHOMA

REACTIONS (1)
  - HUMAN ANTI-MOUSE ANTIBODY POSITIVE [None]
